FAERS Safety Report 7790607-6 (Version None)
Quarter: 2011Q3

REPORT INFORMATION
  Report Type: 
  Country: None (occurrence: None)
  Receive Date: 20110930
  Receipt Date: 20110926
  Transmission Date: 20111222
  Serious: Yes (Other)
  Sender: FDA-Public Use
  Company Number: GXBR2011US04769

PATIENT
  Sex: Male

DRUGS (1)
  1. METHYLPREDNISOLONE [Suspect]
     Dosage: 4 MG, UNK

REACTIONS (4)
  - HYPERHIDROSIS [None]
  - HEART RATE INCREASED [None]
  - ATRIAL FIBRILLATION [None]
  - POLLAKIURIA [None]
